FAERS Safety Report 10232197 (Version 1)
Quarter: 2014Q2

REPORT INFORMATION
  Report Type: Spontaneous
  Country: US (occurrence: US)
  Receive Date: 20140612
  Receipt Date: 20140612
  Transmission Date: 20141212
  Serious: No
  Sender: FDA-Public Use
  Company Number: US-BIOGENIDEC-2014BI051937

PATIENT
  Age: 72 Year
  Sex: Female

DRUGS (5)
  1. TECFIDERA [Suspect]
     Indication: MULTIPLE SCLEROSIS
     Route: 048
     Dates: start: 20140326
  2. PAROXETINE HCL [Concomitant]
  3. AMLODIPINE [Concomitant]
  4. BESY-BENAZEPRIL HCL [Concomitant]
  5. ALENDRONATE SODIUM [Concomitant]

REACTIONS (1)
  - Weight decreased [Not Recovered/Not Resolved]
